FAERS Safety Report 12369305 (Version 1)
Quarter: 2016Q2

REPORT INFORMATION
  Report Type: Spontaneous
  Country: US (occurrence: US)
  Receive Date: 20160513
  Receipt Date: 20160513
  Transmission Date: 20160815
  Serious: Yes (Hospitalization)
  Sender: FDA-Public Use
  Company Number: US-AUROBINDO-AUR-APL-2016-05746

PATIENT

DRUGS (2)
  1. DEXMEDETOMIDINE INJECTION [Suspect]
     Active Substance: DEXMEDETOMIDINE
     Indication: GENERAL ANAESTHESIA
     Dosage: ~0.4 ?G/KG/HUNK
     Route: 065
  2. DEXMEDETOMIDINE INJECTION [Suspect]
     Active Substance: DEXMEDETOMIDINE
     Dosage: 0.5 ?G/KG/H
     Route: 065

REACTIONS (2)
  - Hypernatraemia [Recovered/Resolved]
  - Polyuria [Recovered/Resolved]
